FAERS Safety Report 11521519 (Version 1)
Quarter: 2015Q3

REPORT INFORMATION
  Report Type: Spontaneous
  Country: IL (occurrence: IL)
  Receive Date: 20150918
  Receipt Date: 20150918
  Transmission Date: 20151125
  Serious: Yes (Hospitalization)
  Sender: FDA-Public Use
  Company Number: IL-SHIRE-IL201511529

PATIENT
  Age: 52 Year
  Sex: Male

DRUGS (1)
  1. VPRIV [Suspect]
     Active Substance: VELAGLUCERASE ALFA
     Indication: PRODUCT USED FOR UNKNOWN INDICATION
     Dosage: 6000 UNITS PER MONTH (3200 UNITS ALTERNATING WITH 2800 UNITS), 1X/2WKS
     Route: 041
     Dates: start: 200709

REACTIONS (1)
  - Spleen disorder [Recovered/Resolved]
